FAERS Safety Report 7962126-5 (Version None)
Quarter: 2011Q4

REPORT INFORMATION
  Report Type: 
  Country: None (occurrence: None)
  Receive Date: 20111207
  Receipt Date: 20111130
  Transmission Date: 20120403
  Serious: Yes (Hospitalization, Other)
  Sender: FDA-Public Use
  Company Number: US-ABBOTT-11P-163-0879778-00

PATIENT
  Sex: Female
  Weight: 38.59 kg

DRUGS (8)
  1. HUMIRA [Suspect]
     Indication: CROHN'S DISEASE
     Dates: start: 20110101
  2. LISINOPRIL [Concomitant]
     Indication: HYPERTENSION
  3. AMBIEN [Concomitant]
     Indication: SLEEP DISORDER THERAPY
  4. CLONAZEPAM [Concomitant]
     Indication: STRESS
  5. ASACOL [Concomitant]
     Indication: CROHN'S DISEASE
  6. PREMPRO [Concomitant]
     Indication: HORMONE REPLACEMENT THERAPY
  7. ATENOLOL [Concomitant]
     Indication: HYPERTENSION
  8. MERCAPTOPURINE [Concomitant]
     Indication: CROHN'S DISEASE

REACTIONS (9)
  - FATIGUE [None]
  - INTESTINAL FISTULA [None]
  - ABDOMINAL PAIN [None]
  - CROHN'S DISEASE [None]
  - DIARRHOEA [None]
  - PYREXIA [None]
  - FUNCTIONAL GASTROINTESTINAL DISORDER [None]
  - RECTAL HAEMORRHAGE [None]
  - ABSCESS INTESTINAL [None]
